FAERS Safety Report 19878009 (Version 1)
Quarter: 2021Q3

REPORT INFORMATION
  Report Type: Other
  Country: CA (occurrence: CA)
  Receive Date: 20210924
  Receipt Date: 20210924
  Transmission Date: 20211014
  Serious: Yes (Other)
  Sender: FDA-Public Use
  Company Number: CA-CELLTRION INC.-2021CA012797

PATIENT

DRUGS (19)
  1. ACYCLOVIR. [Concomitant]
     Active Substance: ACYCLOVIR
  2. METHOTREXATE. [Concomitant]
     Active Substance: METHOTREXATE
     Indication: RHEUMATOID ARTHRITIS
     Dosage: 25 MG, 1 EVERY 1 WEEK
     Route: 058
  3. CARVEDILOL. [Concomitant]
     Active Substance: CARVEDILOL
  4. NAPROXEN. [Concomitant]
     Active Substance: NAPROXEN
  5. PERINDOPRIL [Concomitant]
     Active Substance: PERINDOPRIL
  6. RITUXIMAB. [Suspect]
     Active Substance: RITUXIMAB
     Indication: RHEUMATOID ARTHRITIS
     Dosage: 1000 MG
     Route: 041
  7. RITUXIMAB. [Suspect]
     Active Substance: RITUXIMAB
     Indication: POLYARTERITIS NODOSA
     Dosage: UNK
     Route: 065
  8. METHOTREXATE. [Concomitant]
     Active Substance: METHOTREXATE
     Indication: POLYARTERITIS NODOSA
  9. BRILINTA [Concomitant]
     Active Substance: TICAGRELOR
     Indication: ANTICOAGULANT THERAPY
  10. METHYLPREDNISOLONE SODIUM SUCCINATE. [Concomitant]
     Active Substance: METHYLPREDNISOLONE SODIUM SUCCINATE
     Indication: PREMEDICATION
     Dosage: 100 MG
     Route: 042
  11. MYCOPHENOLATE MOFETIL. [Concomitant]
     Active Substance: MYCOPHENOLATE MOFETIL
     Indication: POLYARTERITIS NODOSA
  12. SULFATRIM [Concomitant]
     Active Substance: SULFAMETHOXAZOLE\TRIMETHOPRIM
  13. BENADRYL [Concomitant]
     Active Substance: DIPHENHYDRAMINE HYDROCHLORIDE
     Indication: PREMEDICATION
     Dosage: 50 MG
     Route: 048
  14. FOLIC ACID. [Concomitant]
     Active Substance: FOLIC ACID
  15. HYDROXYCHLOROQUINE SULFATE. [Concomitant]
     Active Substance: HYDROXYCHLOROQUINE SULFATE
  16. PREGABALIN. [Concomitant]
     Active Substance: PREGABALIN
  17. TYLENOL [Concomitant]
     Active Substance: ACETAMINOPHEN
     Indication: PREMEDICATION
     Dosage: 650 MG
     Route: 048
  18. ATORVASTATIN [Concomitant]
     Active Substance: ATORVASTATIN
  19. MYCOPHENOLATE MOFETIL. [Concomitant]
     Active Substance: MYCOPHENOLATE MOFETIL
     Indication: RHEUMATOID ARTHRITIS

REACTIONS (2)
  - Off label use [Unknown]
  - Myocardial infarction [Unknown]
